FAERS Safety Report 6004338-6 (Version None)
Quarter: 2008Q4

REPORT INFORMATION
  Report Type: 
  Country: None (occurrence: None)
  Receive Date: 20081215
  Receipt Date: 20081215
  Transmission Date: 20090506
  Serious: Yes (Death)
  Sender: FDA-Public Use
  Company Number: None

PATIENT
  Sex: Female
  Weight: 68 kg

DRUGS (6)
  1. TENOFOVIR DISOPROXIL FUMARATE [Suspect]
     Indication: HEPATITIS B
     Dosage: ONE TABLET DAILY PO
     Route: 048
     Dates: start: 20081028, end: 20081102
  2. DIOVAN HCT [Concomitant]
  3. VASOTEC [Concomitant]
  4. NORVASC [Concomitant]
  5. ASPIRIN [Concomitant]
  6. ZOCOR [Concomitant]

REACTIONS (3)
  - ALCOHOL USE [None]
  - FOOD INTOLERANCE [None]
  - INFLUENZA LIKE ILLNESS [None]
